FAERS Safety Report 7098651-1 (Version None)
Quarter: 2010Q4

REPORT INFORMATION
  Report Type: 
  Country: None (occurrence: None)
  Receive Date: 20101112
  Receipt Date: 20101103
  Transmission Date: 20110411
  Serious: Yes (Hospitalization, Other)
  Sender: FDA-Public Use
  Company Number: US-JNJFOC-20101102145

PATIENT
  Sex: Male
  Weight: 77.11 kg

DRUGS (12)
  1. MOTRIN [Suspect]
     Indication: PAIN
     Route: 048
  2. LYRICA [Suspect]
     Indication: NEUROPATHY PERIPHERAL
     Route: 048
  3. LYRICA [Suspect]
     Route: 048
  4. LYRICA [Suspect]
     Indication: PAIN
     Route: 048
  5. LYRICA [Suspect]
     Route: 048
  6. COUMADIN [Suspect]
     Indication: ANTICOAGULANT THERAPY
     Route: 048
  7. XANAX [Suspect]
     Indication: ANXIETY
  8. NORVASC [Concomitant]
     Indication: HYPERTENSION
     Route: 048
  9. BACLOFEN [Concomitant]
     Dosage: 10MG 3-4 TIMES
     Route: 048
  10. LORTAB [Concomitant]
     Indication: PAIN
     Route: 048
  11. ALTACE [Concomitant]
     Indication: HYPERTENSION
  12. CRESTOR [Concomitant]
     Indication: BLOOD CHOLESTEROL INCREASED
     Route: 048

REACTIONS (6)
  - COAGULOPATHY [None]
  - DEHYDRATION [None]
  - GASTRIC ULCER HAEMORRHAGE [None]
  - INADEQUATE DIET [None]
  - PAIN [None]
  - STENT PLACEMENT [None]
